FAERS Safety Report 5195093-0 (Version None)
Quarter: 2006Q4

REPORT INFORMATION
  Report Type: 
  Country: None (occurrence: None)
  Receive Date: 20061229
  Receipt Date: 20061219
  Transmission Date: 20070319
  Serious: Yes (Other)
  Sender: FDA-Public Use
  Company Number: US-SHR-US-2006-039952

PATIENT
  Age: 36 Year
  Sex: Female

DRUGS (1)
  1. BETASERON [Suspect]
     Dosage: 8 MIU, EVERY 2D
     Route: 058
     Dates: start: 20060723

REACTIONS (10)
  - ACNE [None]
  - ALOPECIA [None]
  - CONSTIPATION [None]
  - DRY SKIN [None]
  - FATIGUE [None]
  - INJECTION SITE HAEMORRHAGE [None]
  - INJECTION SITE PAIN [None]
  - NAIL GROWTH ABNORMAL [None]
  - SKIN EXFOLIATION [None]
  - WEIGHT INCREASED [None]
